FAERS Safety Report 23777890 (Version 1)
Quarter: 2024Q2

REPORT INFORMATION
  Report Type: Spontaneous
  Country: US (occurrence: None)
  Receive Date: 20240423
  Receipt Date: 20240423
  Transmission Date: 20240716
  Serious: Yes (Death)
  Sender: FDA-Public Use
  Company Number: None

PATIENT
  Sex: Female

DRUGS (7)
  1. DARZALEX [Suspect]
     Active Substance: DARATUMUMAB
     Indication: Plasma cell myeloma
     Dosage: OTHER FREQUENCY : DA 1,8, 15 EVERY21;?
     Route: 042
     Dates: start: 202310
  2. DEXAMETHASONE [Concomitant]
  3. FAMOTIDINE [Concomitant]
     Active Substance: FAMOTIDINE
  4. CYCLOPHOSPHAMIDE [Concomitant]
  5. DIPHENHYDRAMINE [Concomitant]
  6. REVLIMID [Concomitant]
     Active Substance: LENALIDOMIDE
  7. KPROLIS [Concomitant]

REACTIONS (1)
  - Plasma cell myeloma [None]
